FAERS Safety Report 7023827-9 (Version None)
Quarter: 2010Q4

REPORT INFORMATION
  Report Type: 
  Country: None (occurrence: None)
  Receive Date: 20101001
  Receipt Date: 20100920
  Transmission Date: 20110411
  Serious: Yes (Other)
  Sender: FDA-Public Use
  Company Number: US-JNJFOC-20100900556

PATIENT
  Age: 79 Year
  Sex: Female
  Weight: 69.4 kg

DRUGS (5)
  1. REMICADE [Suspect]
     Indication: RHEUMATOID ARTHRITIS
     Route: 042
  2. REMICADE [Suspect]
     Route: 042
  3. REMICADE [Suspect]
     Route: 042
  4. METHOTREXATE [Concomitant]
  5. PREDNISONE [Concomitant]

REACTIONS (1)
  - LYMPHOCYTIC LYMPHOMA [None]
